FAERS Safety Report 7974673-0 (Version None)
Quarter: 2011Q4

REPORT INFORMATION
  Report Type: 
  Country: None (occurrence: None)
  Receive Date: 20111213
  Receipt Date: 20111201
  Transmission Date: 20120403
  Serious: Yes (Disabling)
  Sender: FDA-Public Use
  Company Number: PHFR2011GB05305

PATIENT
  Sex: Male
  Weight: 96.4 kg

DRUGS (3)
  1. LHRH FERRING [Suspect]
     Indication: PROSTATE CANCER
     Dosage: UNK
     Route: 058
     Dates: start: 20081222
  2. ZOMETA [Suspect]
     Indication: METASTASES TO BONE
     Dosage: 4 MG
     Dates: start: 20110815, end: 20110912
  3. ADCAL-D3 [Suspect]
     Dosage: UNK
     Route: 048
     Dates: start: 20110815, end: 20110912

REACTIONS (6)
  - BLINDNESS UNILATERAL [None]
  - DIPLOPIA [None]
  - COLOUR BLINDNESS [None]
  - CRYING [None]
  - EYE PAIN [None]
  - EYE SWELLING [None]
